FAERS Safety Report 4916869-8 (Version None)
Quarter: 2006Q1

REPORT INFORMATION
  Report Type: 
  Country: None (occurrence: None)
  Receive Date: 20060213
  Receipt Date: 20050927
  Transmission Date: 20060701
  Serious: No
  Sender: FDA-Public Use
  Company Number: 2005SP002493

PATIENT
  Age: 29 Year
  Sex: Female
  Weight: 81.6475 kg

DRUGS (4)
  1. LUNESTA [Suspect]
     Indication: INSOMNIA
     Dosage: 2 MG;HS;ORAL
     Route: 048
     Dates: start: 20050812
  2. BUPROPION HCL [Concomitant]
  3. BUSPAR [Concomitant]
  4. KLONOPIN [Concomitant]

REACTIONS (1)
  - DYSGEUSIA [None]
